FAERS Safety Report 18386087 (Version 1)
Quarter: 2020Q4

REPORT INFORMATION
  Report Type: Spontaneous
  Country: US (occurrence: US)
  Receive Date: 20201015
  Receipt Date: 20201015
  Transmission Date: 20210114
  Serious: No
  Sender: FDA-Public Use
  Company Number: US-SA-2020SA236276

PATIENT

DRUGS (1)
  1. AUBAGIO [Suspect]
     Active Substance: TERIFLUNOMIDE
     Dosage: UNK

REACTIONS (5)
  - Unevaluable event [Unknown]
  - Pruritus [Unknown]
  - Burning sensation [Unknown]
  - Hypersensitivity [Unknown]
  - Urticaria [Unknown]
